FAERS Safety Report 24670231 (Version 6)
Quarter: 2025Q1

REPORT INFORMATION
  Report Type: Spontaneous
  Country: US (occurrence: US)
  Receive Date: 20241127
  Receipt Date: 20250218
  Transmission Date: 20250409
  Serious: No
  Sender: PFIZER
  Company Number: US-PFIZER INC-202400307211

PATIENT
  Age: 14 Year
  Sex: Male
  Weight: 63.96 kg

DRUGS (2)
  1. GENOTROPIN [Suspect]
     Active Substance: SOMATROPIN
     Indication: Short stature
     Dosage: 1.4 MG, 1X/DAY [NIGHTLY]
     Dates: start: 20241012
  2. ANASTROZOLE [Concomitant]
     Active Substance: ANASTROZOLE
     Indication: Short stature
     Dosage: 1 MG, 1X/DAY
     Dates: start: 20241012

REACTIONS (6)
  - Injection site pain [Unknown]
  - Needle issue [Unknown]
  - Device use issue [Unknown]
  - Device deployment issue [Unknown]
  - Device physical property issue [Unknown]
  - Drug dose omission by device [Unknown]

NARRATIVE: CASE EVENT DATE: 20241119
